FAERS Safety Report 12498160 (Version 1)
Quarter: 2016Q2

REPORT INFORMATION
  Report Type: Spontaneous
  Country: US (occurrence: US)
  Receive Date: 20160626
  Receipt Date: 20160626
  Transmission Date: 20160815
  Serious: No
  Sender: FDA-Public Use
  Company Number: US-AMGEN-USASP2016079529

PATIENT
  Age: 74 Year
  Sex: Male

DRUGS (1)
  1. ENBREL [Suspect]
     Active Substance: ETANERCEPT
     Indication: ANKYLOSING SPONDYLITIS
     Dosage: UNK UNK, ONCE A WEEK
     Route: 065
     Dates: start: 2014

REACTIONS (2)
  - Drug dose omission [Unknown]
  - Underdose [Unknown]

NARRATIVE: CASE EVENT DATE: 2016
